FAERS Safety Report 15700208 (Version 1)
Quarter: 2018Q4

REPORT INFORMATION
  Report Type: Spontaneous
  Country: IT (occurrence: IT)
  Receive Date: 20181207
  Receipt Date: 20181207
  Transmission Date: 20190205
  Serious: Yes (Hospitalization)
  Sender: FDA-Public Use
  Company Number: IT-TEVA-2018-IT-983366

PATIENT
  Age: 32 Year
  Sex: Male

DRUGS (3)
  1. DELORAZEPAM [Concomitant]
     Active Substance: DELORAZEPAM
  2. OLANZAPINE. [Suspect]
     Active Substance: OLANZAPINE
     Indication: ACUTE PSYCHOSIS
     Dosage: 10 MILLIGRAM DAILY;
     Route: 048
     Dates: start: 20170101, end: 20171229
  3. DEPAKIN 500 MG COMPRESSE GASTRORESISTENTI [Suspect]
     Active Substance: VALPROATE SODIUM
     Indication: ACUTE PSYCHOSIS
     Route: 048
     Dates: start: 20170101, end: 20171229

REACTIONS (3)
  - Delusion [Unknown]
  - Sedation [Unknown]
  - Psychomotor hyperactivity [Unknown]

NARRATIVE: CASE EVENT DATE: 20171229
